FAERS Safety Report 8028899-0 (Version None)
Quarter: 2012Q1

REPORT INFORMATION
  Report Type: 
  Country: None (occurrence: None)
  Receive Date: 20120106
  Receipt Date: 20111227
  Transmission Date: 20120608
  Serious: Yes (Other)
  Sender: FDA-Public Use
  Company Number: FR-GLAXOSMITHKLINE-B0771648A

PATIENT
  Age: 48 Year
  Sex: Female

DRUGS (1)
  1. ARIXTRA [Suspect]
     Indication: THROMBOSIS PROPHYLAXIS
     Dosage: 1INJ PER DAY
     Route: 058
     Dates: start: 20111222

REACTIONS (3)
  - EYE HAEMORRHAGE [None]
  - EYELID OEDEMA [None]
  - DYSPEPSIA [None]
